FAERS Safety Report 7414466-6 (Version None)
Quarter: 2011Q2

REPORT INFORMATION
  Report Type: 
  Country: None (occurrence: None)
  Receive Date: 20110414
  Receipt Date: 20110405
  Transmission Date: 20111010
  Serious: Yes (Death, Hospitalization)
  Sender: FDA-Public Use
  Company Number: NL-CELGENEUS-114-21880-11040402

PATIENT
  Sex: Male
  Weight: 72 kg

DRUGS (5)
  1. REVLIMID [Suspect]
     Dosage: 10 MILLIGRAM
     Route: 048
     Dates: start: 20110303, end: 20110323
  2. ASCAL [Concomitant]
     Indication: THROMBOSIS
     Route: 048
     Dates: start: 20000101, end: 20110327
  3. GRANULOCYTE COLONY STIMULATING FACTOR [Concomitant]
     Route: 065
  4. EPOGEN [Concomitant]
     Route: 065
  5. ASCAL [Concomitant]

REACTIONS (2)
  - SEPSIS [None]
  - BRADYCARDIA [None]
